FAERS Safety Report 23752891 (Version 1)
Quarter: 2024Q2

REPORT INFORMATION
  Report Type: Spontaneous
  Country: US (occurrence: None)
  Receive Date: 20240417
  Receipt Date: 20240417
  Transmission Date: 20240716
  Serious: Yes (Other)
  Sender: FDA-Public Use
  Company Number: None

PATIENT
  Age: 74 Year
  Sex: Female
  Weight: 76.1 kg

DRUGS (12)
  1. GEMTUZUMAB OZOGAMICIN [Suspect]
     Active Substance: GEMTUZUMAB OZOGAMICIN
     Indication: Acute myeloid leukaemia
     Dosage: OTHER FREQUENCY : DAYS 1, 4 AND 7;?
     Route: 042
     Dates: start: 20240327, end: 20240402
  2. TAGRAXOFUSP-ERZS [Suspect]
     Active Substance: TAGRAXOFUSP-ERZS
     Indication: Acute myeloid leukaemia
     Dosage: OTHER QUANTITY : 7 UNIT;?OTHER FREQUENCY : DAY 10-12;?
     Route: 042
     Dates: start: 20240408
  3. CEFEPIME [Concomitant]
  4. carbidopa-levodopa [Concomitant]
  5. VITAMIN D3 [Concomitant]
     Active Substance: CHOLECALCIFEROL
  6. REMERON [Concomitant]
  7. PORTONIX [Concomitant]
  8. POLYVINYL ALCOHOL-POVIDONE [Concomitant]
  9. VFEND [Concomitant]
     Active Substance: VORICONAZOLE
  10. POTASSIUM CHLORIDE [Concomitant]
     Active Substance: POTASSIUM CHLORIDE
  11. ANORO ELLIPTA [Concomitant]
     Active Substance: UMECLIDINIUM BROMIDE\VILANTEROL TRIFENATATE
  12. VALTREX [Concomitant]
     Active Substance: VALACYCLOVIR HYDROCHLORIDE

REACTIONS (4)
  - Febrile neutropenia [None]
  - Hypoxia [None]
  - Pneumonia [None]
  - Lung opacity [None]

NARRATIVE: CASE EVENT DATE: 20240408
